FAERS Safety Report 9341577 (Version 2)
Quarter: 2013Q3

REPORT INFORMATION
  Report Type: Report from Study
  Country: BR (occurrence: BR)
  Receive Date: 20130611
  Receipt Date: 20130814
  Transmission Date: 20140515
  Serious: Yes (Other)
  Sender: FDA-Public Use
  Company Number: PHHY2013BR041397

PATIENT
  Sex: Female

DRUGS (1)
  1. FORASEQ [Suspect]
     Dosage: 1 DF (12 MCG FORMO AND 400 MCG BUDES), UNK

REACTIONS (2)
  - Blood pressure inadequately controlled [Recovering/Resolving]
  - Anxiety [Recovered/Resolved]
